FAERS Safety Report 17375585 (Version 1)
Quarter: 2020Q1

REPORT INFORMATION
  Report Type: Spontaneous
  Country: FR (occurrence: FR)
  Receive Date: 20200206
  Receipt Date: 20200206
  Transmission Date: 20200409
  Serious: Yes (Hospitalization)
  Sender: FDA-Public Use
  Company Number: FR-TEVA-2020-FR-1181918

PATIENT
  Age: 49 Year
  Sex: Female

DRUGS (3)
  1. AMOXICILLINE [Suspect]
     Active Substance: AMOXICILLIN
     Indication: TONSILLITIS
     Dosage: 1 GRAM
     Route: 048
     Dates: start: 20191220, end: 20191220
  2. PARACETAMOL [Suspect]
     Active Substance: ACETAMINOPHEN
     Indication: TONSILLITIS
     Dosage: 1 GRAM
     Route: 048
     Dates: start: 20191220, end: 20191220
  3. THIOVALONE [CHLORHEXIDINE DIACETATE/TIXOCORTOL PIVALATE] [Suspect]
     Active Substance: CHLORHEXIDINE DIACETATE\TIXOCORTOL PIVALATE
     Indication: TONSILLITIS
     Route: 048
     Dates: start: 20191220, end: 20191220

REACTIONS (5)
  - Vomiting [Recovered/Resolved]
  - Lip swelling [Recovered/Resolved]
  - Pruritus genital [Recovered/Resolved]
  - Pruritus [Recovered/Resolved]
  - Muscle spasms [Recovered/Resolved]

NARRATIVE: CASE EVENT DATE: 20191220
